FAERS Safety Report 18865983 (Version 2)
Quarter: 2021Q1

REPORT INFORMATION
  Report Type: Spontaneous
  Country: JP (occurrence: JP)
  Receive Date: 20210209
  Receipt Date: 20210301
  Transmission Date: 20210420
  Serious: Yes (Other)
  Sender: FDA-Public Use
  Company Number: JP-GLAXOSMITHKLINE-JP2021030002

PATIENT
  Age: 71 Year
  Sex: Male

DRUGS (2)
  1. VALTREX [Suspect]
     Active Substance: VALACYCLOVIR HYDROCHLORIDE
     Dosage: 500 MG, QOD, 1 TABLET PER DOSE EVERY OTHER DAY/ON MONDAY, WEDNESDAY AND FRIDAY
     Route: 048
     Dates: start: 202101
  2. BAKTAR [Concomitant]
     Active Substance: SULFAMETHOXAZOLE\TRIMETHOPRIM
     Dosage: UNK, PRESCRIBED ON MONDAY, WEDNESDAY AND FRIDAY

REACTIONS (2)
  - Lymphoma [Unknown]
  - Product use issue [Unknown]
